FAERS Safety Report 6013779-2 (Version None)
Quarter: 2008Q4

REPORT INFORMATION
  Report Type: 
  Country: None (occurrence: None)
  Receive Date: 20081218
  Receipt Date: 20081218
  Transmission Date: 20090506
  Serious: Yes (Hospitalization)
  Sender: FDA-Public Use
  Company Number: None

PATIENT
  Sex: Male
  Weight: 86.1834 kg

DRUGS (4)
  1. HEPARIN [Suspect]
     Indication: CARDIAC PACEMAKER BATTERY REPLACEMENT
     Dates: start: 20071222, end: 20071231
  2. HEPARIN [Suspect]
     Indication: COLONOSCOPY
     Dates: start: 20071222, end: 20071231
  3. HEPARIN [Suspect]
     Indication: CARDIAC PACEMAKER BATTERY REPLACEMENT
     Dates: start: 20081213, end: 20081214
  4. HEPARIN [Suspect]
     Indication: COLONOSCOPY
     Dates: start: 20081213, end: 20081214

REACTIONS (5)
  - DECREASED INTEREST [None]
  - DRUG HYPERSENSITIVITY [None]
  - FLUID RETENTION [None]
  - HAEMORRHAGE [None]
  - HYPOTENSION [None]
